FAERS Safety Report 7089673-5 (Version None)
Quarter: 2010Q4

REPORT INFORMATION
  Report Type: 
  Country: None (occurrence: None)
  Receive Date: 20101108
  Receipt Date: 20091202
  Transmission Date: 20110411
  Serious: No
  Sender: FDA-Public Use
  Company Number: US-ABBOTT-09P-163-0611674-00

PATIENT
  Sex: Male
  Weight: 81.72 kg

DRUGS (4)
  1. TRICOR [Suspect]
     Indication: BLOOD TRIGLYCERIDES INCREASED
     Route: 048
     Dates: start: 20091001
  2. COUMADIN [Concomitant]
     Indication: AORTIC VALVE REPLACEMENT
     Dosage: 35MG PER WEEK
     Route: 048
     Dates: start: 19970101, end: 20091001
  3. COUMADIN [Concomitant]
     Dosage: 20MG PER WEEK
     Route: 048
     Dates: start: 20091201
  4. COUMADIN [Concomitant]
     Dosage: 25MG PER WEEK
     Route: 048
     Dates: start: 20091101, end: 20091130

REACTIONS (1)
  - INTERNATIONAL NORMALISED RATIO INCREASED [None]
